FAERS Safety Report 7739824-1 (Version None)
Quarter: 2011Q3

REPORT INFORMATION
  Report Type: 
  Country: None (occurrence: None)
  Receive Date: 20110909
  Receipt Date: 20110825
  Transmission Date: 20111222
  Serious: Yes (Other)
  Sender: FDA-Public Use
  Company Number: PHHY2011FR76287

PATIENT
  Sex: Male

DRUGS (2)
  1. RASILEZ [Suspect]
     Dosage: 150 MG, UNK
  2. RASILEZ [Suspect]
     Dosage: 300 MG, UNK

REACTIONS (1)
  - RENAL FAILURE [None]
